FAERS Safety Report 9536473 (Version 1)
Quarter: 2013Q2

REPORT INFORMATION
  Report Type: Spontaneous
  Country: US (occurrence: None)
  Receive Date: 20130510
  Receipt Date: 20130510
  Transmission Date: 20140414
  Serious: Yes (Other)
  Sender: FDA-Public Use
  Company Number: US-011270

PATIENT
  Age: 52 Year
  Sex: Female
  Weight: 59.88 kg

DRUGS (2)
  1. PICO-SALAX [Suspect]
     Indication: COLONOSCOPY
     Dosage: 1 PACKED MIXED IN 5 OZ WATER X 2 ORAL
     Route: 048
     Dates: start: 20130324, end: 20130324
  2. ATORVASTATIN [Concomitant]

REACTIONS (1)
  - Drug ineffective [None]
